FAERS Safety Report 5531483-1 (Version None)
Quarter: 2007Q4

REPORT INFORMATION
  Report Type: 
  Country: None (occurrence: None)
  Receive Date: 20071203
  Receipt Date: 20071128
  Transmission Date: 20080405
  Serious: Yes (Death, Hospitalization)
  Sender: FDA-Public Use
  Company Number: PHRM2007FR00846

PATIENT
  Age: 77 Year
  Sex: Female
  Weight: 78 kg

DRUGS (4)
  1. GLEEVEC [Suspect]
     Indication: GASTROINTESTINAL STROMAL TUMOUR
     Dosage: 400 MG DAILY
     Route: 048
     Dates: start: 20070204, end: 20070209
  2. DIAMICRON [Concomitant]
  3. MODUCREN [Concomitant]
     Indication: HYPERTENSION
  4. DIOSMINE [Concomitant]
     Indication: OEDEMA

REACTIONS (11)
  - ASTHENIA [None]
  - C-REACTIVE PROTEIN INCREASED [None]
  - DIARRHOEA [None]
  - GENERAL PHYSICAL HEALTH DETERIORATION [None]
  - HAEMORRHAGIC STROKE [None]
  - HEMIPARESIS [None]
  - HYPOKALAEMIA [None]
  - PYREXIA [None]
  - RED BLOOD CELL SEDIMENTATION RATE INCREASED [None]
  - SOMNOLENCE [None]
  - URINARY TRACT INFECTION [None]
